FAERS Safety Report 18545646 (Version 1)
Quarter: 2020Q4

REPORT INFORMATION
  Report Type: Spontaneous
  Country: US (occurrence: US)
  Receive Date: 20201125
  Receipt Date: 20201125
  Transmission Date: 20210114
  Serious: No
  Sender: FDA-Public Use
  Company Number: None

PATIENT
  Age: 20 Year
  Sex: Female
  Weight: 165 kg

DRUGS (1)
  1. VANCOMYCIN IV SOLUTION [Suspect]
     Active Substance: VANCOMYCIN

REACTIONS (2)
  - Red man syndrome [None]
  - Infusion related reaction [None]

NARRATIVE: CASE EVENT DATE: 20201119
